FAERS Safety Report 6025412-4 (Version None)
Quarter: 2008Q4

REPORT INFORMATION
  Report Type: 
  Country: None (occurrence: None)
  Receive Date: 20081224
  Receipt Date: 20081216
  Transmission Date: 20090506
  Serious: Yes (Death)
  Sender: FDA-Public Use
  Company Number: 2008S1020405

PATIENT
  Age: 61 Year
  Sex: Male

DRUGS (2)
  1. AMNESTEEM [Suspect]
     Indication: BRAIN NEOPLASM MALIGNANT
  2. AMNESTEEM [Suspect]
     Indication: BRAIN NEOPLASM MALIGNANT
     Dosage: 200 MG;DAILY;ORAL
     Route: 048

REACTIONS (1)
  - MALIGNANT NEOPLASM PROGRESSION [None]
